FAERS Safety Report 8252623-X (Version None)
Quarter: 2012Q2

REPORT INFORMATION
  Report Type: 
  Country: None (occurrence: None)
  Receive Date: 20120402
  Receipt Date: 20110803
  Transmission Date: 20120825
  Serious: No
  Sender: FDA-Public Use
  Company Number: US-ABBOTT-11P-163-0843352-00

PATIENT
  Sex: Male
  Weight: 69.916 kg

DRUGS (3)
  1. ANDROGEL [Suspect]
     Indication: BLOOD TESTOSTERONE DECREASED
     Dates: end: 20110701
  2. UNKNOWN MEDICATION [Concomitant]
     Indication: ADRENAL INSUFFICIENCY
  3. UNKNOWN MEDICATION [Concomitant]
     Indication: HYPOTHYROIDISM

REACTIONS (3)
  - ACNE [None]
  - DRUG ADMINISTERED AT INAPPROPRIATE SITE [None]
  - STAPHYLOCOCCAL INFECTION [None]
